FAERS Safety Report 5321325-1 (Version None)
Quarter: 2007Q2

REPORT INFORMATION
  Report Type: 
  Country: None (occurrence: None)
  Receive Date: 20070507
  Receipt Date: 20070507
  Transmission Date: 20071010
  Serious: Yes (Hospitalization)
  Sender: FDA-Public Use
  Company Number: None

PATIENT
  Age: 40 Year
  Sex: Female
  Weight: 50.8029 kg

DRUGS (2)
  1. ALDARA [Suspect]
     Indication: PROPHYLAXIS
     Dosage: THIN LAYER EVERY OTHER NIGHT TOP
     Route: 061
     Dates: start: 20070329, end: 20070410
  2. ALDARA [Suspect]
     Indication: WART EXCISION
     Dosage: THIN LAYER EVERY OTHER NIGHT TOP
     Route: 061
     Dates: start: 20070329, end: 20070410

REACTIONS (6)
  - ABDOMINAL PAIN UPPER [None]
  - BACK PAIN [None]
  - HEART RATE INCREASED [None]
  - NAUSEA [None]
  - PAIN [None]
  - PAIN IN EXTREMITY [None]
